FAERS Safety Report 7821158-8 (Version None)
Quarter: 2011Q4

REPORT INFORMATION
  Report Type: 
  Country: None (occurrence: None)
  Receive Date: 20111018
  Receipt Date: 20111007
  Transmission Date: 20120403
  Serious: Yes (Other)
  Sender: FDA-Public Use
  Company Number: JP-ROCHE-GNE310442

PATIENT
  Age: 82 Year
  Sex: Male

DRUGS (7)
  1. DILTIAZEM HCL [Concomitant]
     Dates: start: 20101116, end: 20101118
  2. RADICUT [Suspect]
     Indication: EMBOLIC STROKE
     Dosage: 30 MG, BID
     Dates: start: 20101116
  3. ACTIVASE [Suspect]
     Indication: EMBOLIC STROKE
     Dosage: 32.5 ML, QD
     Route: 042
     Dates: start: 20101116, end: 20101116
  4. WARFARIN SODIUM [Concomitant]
  5. HEPARIN [Concomitant]
     Indication: PRODUCT USED FOR UNKNOWN INDICATION
     Dosage: UNK
     Dates: start: 20101117
  6. HEPARIN SODIUM [Concomitant]
     Indication: PRODUCT USED FOR UNKNOWN INDICATION
     Dosage: UNK
     Dates: start: 20101117
  7. LOW MOLECULAR DEXTRAN [Concomitant]
     Dates: start: 20101116, end: 20101128

REACTIONS (2)
  - RENAL FUNCTION TEST ABNORMAL [None]
  - OLIGURIA [None]
